FAERS Safety Report 18328947 (Version 1)
Quarter: 2020Q3

REPORT INFORMATION
  Report Type: Spontaneous
  Country: US (occurrence: US)
  Receive Date: 20200929
  Receipt Date: 20200929
  Transmission Date: 20201103
  Serious: No
  Sender: FDA-Public Use
  Company Number: None

PATIENT
  Age: 27 Year
  Sex: Female
  Weight: 60.75 kg

DRUGS (3)
  1. PRASCO ETONOGESTREL/ETHINYL ESTRADIOL VAGINAL RING [Suspect]
     Active Substance: ETHINYL ESTRADIOL\ETONOGESTREL
     Indication: POLYCYSTIC OVARIES
     Dates: start: 20200913
  2. VAGINAL RING BIRTH CONTROL [Concomitant]
  3. SPIRONOLACTONE. [Concomitant]
     Active Substance: SPIRONOLACTONE

REACTIONS (5)
  - Anxiety [None]
  - Vaginal haemorrhage [None]
  - Product substitution issue [None]
  - Vaginal discharge [None]
  - Product use complaint [None]

NARRATIVE: CASE EVENT DATE: 20200926
